FAERS Safety Report 21434768 (Version 1)
Quarter: 2022Q4

REPORT INFORMATION
  Report Type: Spontaneous
  Country: RU (occurrence: RU)
  Receive Date: 20221010
  Receipt Date: 20221010
  Transmission Date: 20230113
  Serious: Yes (Other)
  Sender: FDA-Public Use
  Company Number: RU-BAUSCHBL-2022BNL000881

PATIENT
  Age: 63 Year
  Sex: Female

DRUGS (1)
  1. FLOXAL [Suspect]
     Active Substance: OFLOXACIN
     Indication: Ulcerative keratitis
     Route: 065
     Dates: start: 20220926, end: 20220926

REACTIONS (3)
  - Pruritus [Recovering/Resolving]
  - Swelling of eyelid [Recovering/Resolving]
  - Erythema of eyelid [Recovering/Resolving]

NARRATIVE: CASE EVENT DATE: 20220926
